FAERS Safety Report 11241080 (Version 1)
Quarter: 2015Q3

REPORT INFORMATION
  Report Type: Spontaneous
  Country: US (occurrence: US)
  Receive Date: 20150706
  Receipt Date: 20150706
  Transmission Date: 20151125
  Serious: Yes (Hospitalization)
  Sender: FDA-Public Use
  Company Number: US-GLAXOSMITHKLINE-US2015GSK091776

PATIENT
  Age: 71 Year
  Sex: Female

DRUGS (1)
  1. TAFINLAR [Suspect]
     Active Substance: DABRAFENIB MESYLATE
     Indication: HEPATIC CANCER
     Dosage: 75 MG, U
     Dates: start: 2015

REACTIONS (1)
  - Hepatic pain [Unknown]

NARRATIVE: CASE EVENT DATE: 20150605
